FAERS Safety Report 4885980-2 (Version None)
Quarter: 2006Q1

REPORT INFORMATION
  Report Type: 
  Country: None (occurrence: None)
  Receive Date: 20060117
  Receipt Date: 20060105
  Transmission Date: 20060701
  Serious: Yes (Other)
  Sender: FDA-Public Use
  Company Number: 2005171342

PATIENT
  Age: 75 Year
  Sex: Female

DRUGS (2)
  1. FELDENE [Suspect]
     Indication: PAIN
     Dosage: (20 MG) RECTAL
     Route: 054
  2. NEOSALDINA (CAFFEINE, ISOMETHEPTENE, METAMIZOLE SODIUM) [Concomitant]

REACTIONS (5)
  - ABDOMINAL DISCOMFORT [None]
  - DIARRHOEA [None]
  - FALL [None]
  - HAEMORRHOIDS [None]
  - SPINAL FRACTURE [None]
